FAERS Safety Report 6326383-3 (Version None)
Quarter: 2009Q3

REPORT INFORMATION
  Report Type: 
  Country: None (occurrence: None)
  Receive Date: 20090821
  Receipt Date: 20090807
  Transmission Date: 20100115
  Serious: Yes (Other)
  Sender: FDA-Public Use
  Company Number: JP-2009-1673

PATIENT
  Age: 60 Year
  Sex: Male

DRUGS (2)
  1. NAVELBINE [Suspect]
     Indication: LUNG NEOPLASM MALIGNANT
  2. CISPLATIN [Concomitant]

REACTIONS (3)
  - BLISTER [None]
  - DERMABRASION [None]
  - URTICARIA [None]
